FAERS Safety Report 16959164 (Version 3)
Quarter: 2019Q4

REPORT INFORMATION
  Report Type: Report from Study
  Country: None (occurrence: AU)
  Receive Date: 20191024
  Receipt Date: 20191101
  Transmission Date: 20200122
  Serious: Yes (Hospitalization)
  Sender: FDA-Public Use
  Company Number: AU-ABBVIE-19K-008-2941028-00

PATIENT
  Age: 70 Year
  Sex: Male

DRUGS (1)
  1. LUCRIN [Suspect]
     Active Substance: LEUPROLIDE ACETATE
     Indication: PROSTATE CANCER
     Route: 030
     Dates: start: 20150708

REACTIONS (7)
  - Pathological fracture [Unknown]
  - Muscular weakness [Recovering/Resolving]
  - Forearm fracture [Recovering/Resolving]
  - Pathological fracture [Recovering/Resolving]
  - Fall [Recovered/Resolved]
  - Post procedural complication [Recovering/Resolving]
  - Fall [Unknown]

NARRATIVE: CASE EVENT DATE: 201906
